FAERS Safety Report 14186905 (Version 1)
Quarter: 2017Q4

REPORT INFORMATION
  Report Type: Spontaneous
  Country: US (occurrence: US)
  Receive Date: 20171113
  Receipt Date: 20171113
  Transmission Date: 20180321
  Serious: Yes (Death, Life-Threatening)
  Sender: FDA-Public Use
  Company Number: None

PATIENT
  Sex: Female
  Weight: 29.25 kg

DRUGS (1)
  1. LORAZEPAM ORAL CONCENTRATE [Suspect]
     Active Substance: LORAZEPAM
     Indication: DEMENTIA ALZHEIMER^S TYPE

REACTIONS (1)
  - Death [None]

NARRATIVE: CASE EVENT DATE: 20171106
